FAERS Safety Report 23964566 (Version 2)
Quarter: 2024Q4

REPORT INFORMATION
  Report Type: Spontaneous
  Country: US (occurrence: US)
  Receive Date: 20240612
  Receipt Date: 20241217
  Transmission Date: 20250115
  Serious: Yes (Other)
  Sender: STRIDES
  Company Number: US-STRIDES ARCOLAB LIMITED-2024SP006631

PATIENT
  Age: 57 Year
  Sex: Female
  Weight: 145.13 kg

DRUGS (4)
  1. TOPIRAMATE [Suspect]
     Active Substance: TOPIRAMATE
     Indication: Nephrolithiasis
     Dosage: 25 MILLIGRAM
     Route: 065
     Dates: start: 202211
  2. TOPIRAMATE [Suspect]
     Active Substance: TOPIRAMATE
     Indication: Urine alkalinisation therapy
     Dosage: 50 MILLIGRAM (DOSE INCREASED)
     Route: 065
     Dates: start: 202212
  3. QSYMIA [Concomitant]
     Active Substance: PHENTERMINE HYDROCHLORIDE\TOPIRAMATE
     Indication: Nephrolithiasis
     Dosage: UNK (3.75 MG/ 23 MG )
     Route: 065
     Dates: start: 2022
  4. QSYMIA [Concomitant]
     Active Substance: PHENTERMINE HYDROCHLORIDE\TOPIRAMATE
     Indication: Urine alkalinisation therapy
     Dosage: UNK
     Route: 065
     Dates: start: 20210620

REACTIONS (3)
  - Treatment noncompliance [Unknown]
  - Brain fog [Unknown]
  - Off label use [Unknown]
